FAERS Safety Report 13299963 (Version 1)
Quarter: 2017Q1

REPORT INFORMATION
  Report Type: Spontaneous
  Country: PL (occurrence: PL)
  Receive Date: 20170306
  Receipt Date: 20170306
  Transmission Date: 20170428
  Serious: Yes (Hospitalization)
  Sender: FDA-Public Use
  Company Number: PL-BAUSCH-BL-2017-005123

PATIENT
  Age: 62 Year
  Sex: Female

DRUGS (4)
  1. DICLOFENAC [Suspect]
     Active Substance: DICLOFENAC
     Indication: UPPER RESPIRATORY TRACT INFECTION
     Dosage: SEVERAL TIMES
     Route: 065
  2. IBUPROFEN. [Suspect]
     Active Substance: IBUPROFEN
     Indication: UPPER RESPIRATORY TRACT INFECTION
     Dosage: SEVERAL TIMES
     Route: 065
  3. AMOXICILLIN AND CLAVULANIC ACID [Suspect]
     Active Substance: AMOXICILLIN\CLAVULANIC ACID
     Indication: UPPER RESPIRATORY TRACT INFECTION
     Dosage: SEVERAL TIMES
     Route: 065
  4. PARACETAMOL [Suspect]
     Active Substance: ACETAMINOPHEN
     Indication: UPPER RESPIRATORY TRACT INFECTION
     Dosage: SEVERAL TIMES
     Route: 065

REACTIONS (20)
  - Hyperuricaemia [Unknown]
  - Haematuria [Unknown]
  - Anaemia [Unknown]
  - Leukopenia [Unknown]
  - Blood pressure increased [Unknown]
  - Hypoproteinaemia [Unknown]
  - C-reactive protein increased [Unknown]
  - Asthenia [Unknown]
  - Skin lesion [Unknown]
  - Complement deficiency disease [Unknown]
  - Hypoalbuminaemia [Unknown]
  - Peripheral swelling [Unknown]
  - Arthralgia [Unknown]
  - Pyuria [Unknown]
  - Blood urea increased [Unknown]
  - Leukocyturia [Unknown]
  - Blood creatinine increased [Unknown]
  - Neutropenia [Unknown]
  - Malaise [Unknown]
  - Inflammation [Unknown]
